FAERS Safety Report 23053894 (Version 5)
Quarter: 2024Q2

REPORT INFORMATION
  Report Type: Report from Study
  Country: US (occurrence: US)
  Receive Date: 20231011
  Receipt Date: 20240625
  Transmission Date: 20240716
  Serious: Yes (Hospitalization, Other)
  Sender: FDA-Public Use
  Company Number: US-INSMED, INC.-2023-03608-US

PATIENT
  Sex: Female

DRUGS (1)
  1. ARIKAYCE [Suspect]
     Active Substance: AMIKACIN
     Indication: Product used for unknown indication
     Dosage: 590 MILLIGRAM, QD
     Route: 055

REACTIONS (5)
  - Hospitalisation [Unknown]
  - Dementia Alzheimer^s type [Unknown]
  - COVID-19 [Not Recovered/Not Resolved]
  - Anal incontinence [Unknown]
  - Ill-defined disorder [Unknown]
